FAERS Safety Report 8792821 (Version 1)
Quarter: 2012Q4

REPORT INFORMATION
  Report Type: 
  Country: US (occurrence: US)
  Receive Date: 20120918
  Receipt Date: 20120918
  Transmission Date: 20130627
  Serious: No
  Sender: FDA-Public Use
  Company Number: US-B.I. PHARMACEUTICALS,INC./RIDGEFIELD-2012-BP-22582BP

PATIENT
  Age: 75 Year
  Sex: Female

DRUGS (5)
  1. ZANTAC 150 (RANITIDINE HYDROCHLORIDE) [Suspect]
     Indication: GASTROOESOPHAGEAL REFLUX DISEASE
     Route: 048
     Dates: start: 20120912
  2. ANACIN [Concomitant]
     Indication: ARTHRITIS
     Route: 048
  3. VESICARE [Concomitant]
     Indication: URINARY INCONTINENCE
     Route: 048
  4. PRILOSEC [Concomitant]
     Indication: GASTROOESOPHAGEAL REFLUX DISEASE
     Route: 048
  5. MEDICATION NOT FURTHER SPECIFIED [Concomitant]
     Indication: HYPERTENSION

REACTIONS (2)
  - Dyspepsia [Recovered/Resolved]
  - Chest discomfort [Recovered/Resolved]
